FAERS Safety Report 9142722 (Version 1)
Quarter: 2013Q1

REPORT INFORMATION
  Report Type: Spontaneous
  Country: US (occurrence: US)
  Receive Date: 20130306
  Receipt Date: 20130306
  Transmission Date: 20140127
  Serious: No
  Sender: FDA-Public Use
  Company Number: US-ENDO PHARMACEUTICALS INC.-OPCR20130016

PATIENT
  Sex: Female

DRUGS (3)
  1. OPANA ER [Suspect]
     Indication: PAIN
     Route: 048
     Dates: start: 2012, end: 201211
  2. OPANA ER [Suspect]
     Route: 048
     Dates: start: 201211, end: 201212
  3. OPANA [Suspect]
     Indication: PAIN
     Route: 048
     Dates: start: 2012

REACTIONS (4)
  - Influenza like illness [Not Recovered/Not Resolved]
  - Nausea [Not Recovered/Not Resolved]
  - Drug effect decreased [Recovered/Resolved]
  - Drug ineffective [Recovered/Resolved]
